FAERS Safety Report 5326274-0 (Version None)
Quarter: 2007Q2

REPORT INFORMATION
  Report Type: 
  Country: None (occurrence: None)
  Receive Date: 20070514
  Receipt Date: 20070514
  Transmission Date: 20071010
  Serious: Yes (Hospitalization)
  Sender: FDA-Public Use
  Company Number: None

PATIENT
  Sex: Male
  Weight: 95.2554 kg

DRUGS (2)
  1. LEVITRA [Suspect]
     Indication: ERECTILE DYSFUNCTION
     Dosage: 20MG PRN PO
     Route: 048
     Dates: start: 20030101, end: 20070414
  2. AMITIZA [Suspect]
     Indication: CONSTIPATION
     Dosage: 24MCG BID PO
     Route: 048
     Dates: start: 20060101, end: 20070414

REACTIONS (4)
  - DIZZINESS [None]
  - LEUKOCYTOSIS [None]
  - PYREXIA [None]
  - SPLENIC INFARCTION [None]
